FAERS Safety Report 6760848-5 (Version None)
Quarter: 2010Q2

REPORT INFORMATION
  Report Type: 
  Country: None (occurrence: None)
  Receive Date: 20100608
  Receipt Date: 20100525
  Transmission Date: 20101027
  Serious: Yes (Other)
  Sender: FDA-Public Use
  Company Number: PHHY2010JP29845

PATIENT
  Age: 68 Year
  Sex: Male

DRUGS (3)
  1. RASILEZ [Suspect]
     Indication: HYPERTENSION
     Dosage: 300 MG DAILY
     Route: 048
     Dates: start: 20100428, end: 20100510
  2. RASILEZ [Suspect]
     Dosage: 150 MG DAILY
     Route: 048
     Dates: start: 20100511
  3. PLAS-AMINO [Suspect]
     Dosage: 500ML DAILY
     Dates: end: 20100510

REACTIONS (2)
  - ACIDOSIS [None]
  - BLOOD URIC ACID INCREASED [None]
